FAERS Safety Report 14695325 (Version 1)
Quarter: 2018Q1

REPORT INFORMATION
  Report Type: Spontaneous
  Country: JP (occurrence: JP)
  Receive Date: 20180329
  Receipt Date: 20180329
  Transmission Date: 20180509
  Serious: Yes (Hospitalization)
  Sender: FDA-Public Use
  Company Number: JP-PFIZER INC-2018124517

PATIENT
  Age: 83 Year
  Sex: Female

DRUGS (2)
  1. CORTRIL [Suspect]
     Active Substance: HYDROCORTISONE
     Indication: HYPOPITUITARISM
     Route: 048
  2. THYRADIN [Concomitant]
     Active Substance: LEVOTHYROXINE

REACTIONS (4)
  - Asthenia [Unknown]
  - Altered state of consciousness [Unknown]
  - Withdrawal syndrome [Unknown]
  - Feeding disorder [Unknown]

NARRATIVE: CASE EVENT DATE: 201803
